FAERS Safety Report 12069461 (Version 2)
Quarter: 2016Q1

REPORT INFORMATION
  Report Type: Spontaneous
  Country: FR (occurrence: FR)
  Receive Date: 20160211
  Receipt Date: 20160304
  Transmission Date: 20160526
  Serious: Yes (Hospitalization, Other)
  Sender: FDA-Public Use
  Company Number: FR-BAYER-2016-021913

PATIENT
  Age: 40 Year
  Sex: Female

DRUGS (10)
  1. IZILOX [Suspect]
     Active Substance: MOXIFLOXACIN HYDROCHLORIDE
     Indication: TUBERCULOSIS
     Dosage: 400 MG, QD
     Route: 048
     Dates: start: 20150717
  2. VENOFER [Concomitant]
     Active Substance: IRON SUCROSE
     Dosage: UNK
     Dates: start: 20150910
  3. UN-ALFA [Concomitant]
     Active Substance: ALFACALCIDOL
     Dosage: 1 ?G, TIW
     Dates: start: 20150910
  4. ISONIAZID. [Suspect]
     Active Substance: ISONIAZID
     Dosage: 300 MG, QD
     Dates: start: 20150717
  5. ETHAMBUTOL [Concomitant]
     Active Substance: ETHAMBUTOL HYDROCHLORIDE
     Dosage: UNK
     Dates: start: 20150717, end: 20150818
  6. UVEDOSE [Concomitant]
     Active Substance: CHOLECALCIFEROL
     Dosage: UNK
     Dates: start: 20150910
  7. CALCITE [Concomitant]
     Active Substance: CALCIUM CARBONATE
     Dosage: 500 MG, QD
     Dates: start: 20150910
  8. PIRILENE [Concomitant]
     Active Substance: PYRAZINAMIDE
     Dosage: 1500 MG, TIW
     Dates: start: 20150910
  9. ETHAMBUTOL [Concomitant]
     Active Substance: ETHAMBUTOL HYDROCHLORIDE
     Dosage: 1000 MG, TIW
     Dates: start: 20150910
  10. RIFAMPICIN [Concomitant]
     Active Substance: RIFAMPIN
     Dosage: UNK
     Dates: start: 20150717, end: 20150818

REACTIONS (8)
  - Papilloedema [Not Recovered/Not Resolved]
  - Headache [None]
  - Skin reaction [None]
  - Neuropathy peripheral [None]
  - Visual impairment [Not Recovered/Not Resolved]
  - Benign intracranial hypertension [None]
  - Retinal haemorrhage [None]
  - Off label use [None]

NARRATIVE: CASE EVENT DATE: 2015
